FAERS Safety Report 24433866 (Version 1)
Quarter: 2024Q4

REPORT INFORMATION
  Report Type: Spontaneous
  Country: US (occurrence: US)
  Receive Date: 20241014
  Receipt Date: 20241014
  Transmission Date: 20250115
  Serious: No
  Sender: SPROUT PHARMACEUTICALS, INC.
  Company Number: US-Sprout Pharmaceuticals, Inc.-2024SP000141

PATIENT
  Sex: Female

DRUGS (1)
  1. ADDYI [Suspect]
     Active Substance: FLIBANSERIN
     Indication: Product used for unknown indication
     Route: 048

REACTIONS (5)
  - Oedema peripheral [Recovering/Resolving]
  - Micturition urgency [Recovering/Resolving]
  - Restlessness [Recovering/Resolving]
  - Depression [Recovering/Resolving]
  - Face oedema [Recovering/Resolving]
